FAERS Safety Report 7401004-7 (Version None)
Quarter: 2011Q2

REPORT INFORMATION
  Report Type: 
  Country: None (occurrence: None)
  Receive Date: 20110407
  Receipt Date: 20110329
  Transmission Date: 20111010
  Serious: Yes (Death, Hospitalization, Other)
  Sender: FDA-Public Use
  Company Number: US-BAXTER-2009BH013294

PATIENT
  Age: 73 Year
  Sex: Male
  Weight: 79 kg

DRUGS (25)
  1. HEPARIN SODIUM INJECTION [Suspect]
     Indication: THROMBOSIS
     Route: 058
     Dates: start: 20080207, end: 20080213
  2. GLIPIZIDE [Concomitant]
     Indication: PRODUCT USED FOR UNKNOWN INDICATION
     Route: 048
  3. LISINOPRIL [Concomitant]
     Indication: PRODUCT USED FOR UNKNOWN INDICATION
     Route: 065
  4. HEPARIN SODIUM 1,000 UNITS AND SODIUM CHLORIDE 0.9% [Suspect]
     Route: 041
     Dates: start: 20080201, end: 20080206
  5. LANTUS [Concomitant]
     Indication: PRODUCT USED FOR UNKNOWN INDICATION
     Route: 058
  6. NOVOLIN 70/30 [Concomitant]
     Indication: PRODUCT USED FOR UNKNOWN INDICATION
     Route: 065
  7. HEPARIN SODIUM INJECTION [Suspect]
     Route: 042
     Dates: start: 20080206, end: 20080301
  8. HEPARIN SODIUM 1,000 UNITS AND SODIUM CHLORIDE 0.9% [Suspect]
     Indication: THROMBOSIS
     Route: 041
     Dates: start: 20080213, end: 20080301
  9. SIMVASTATIN [Concomitant]
     Indication: PRODUCT USED FOR UNKNOWN INDICATION
     Route: 065
  10. IMDUR [Concomitant]
     Indication: PRODUCT USED FOR UNKNOWN INDICATION
     Route: 048
  11. TOPROL-XL [Concomitant]
     Indication: PRODUCT USED FOR UNKNOWN INDICATION
     Route: 048
  12. TRIMOX [Concomitant]
     Indication: PRODUCT USED FOR UNKNOWN INDICATION
     Route: 048
  13. CLONIDINE [Concomitant]
     Indication: PRODUCT USED FOR UNKNOWN INDICATION
     Route: 048
  14. DIFLUCAN [Concomitant]
     Indication: PRODUCT USED FOR UNKNOWN INDICATION
     Route: 048
  15. ASPIRIN [Concomitant]
     Indication: PRODUCT USED FOR UNKNOWN INDICATION
     Route: 048
  16. HEPARIN SODIUM 5,000 UNITS IN DEXTROSE 5% [Suspect]
     Indication: THROMBOSIS
     Route: 041
     Dates: start: 20080202, end: 20080202
  17. HEPARIN SODIUM 5,000 UNITS IN DEXTROSE 5% [Suspect]
     Route: 041
     Dates: start: 20080213, end: 20080301
  18. ACTOS [Concomitant]
     Indication: PRODUCT USED FOR UNKNOWN INDICATION
     Route: 065
  19. HEPARIN SODIUM INJECTION [Suspect]
     Route: 042
     Dates: start: 20080212, end: 20080217
  20. WARFARIN SODIUM [Concomitant]
     Indication: PRODUCT USED FOR UNKNOWN INDICATION
     Route: 048
  21. HYDRALAZINE [Concomitant]
     Indication: PRODUCT USED FOR UNKNOWN INDICATION
     Route: 048
  22. HEPARIN SODIUM INJECTION [Suspect]
     Route: 040
     Dates: start: 20080213, end: 20080213
  23. HEPARIN SODIUM INJECTION [Suspect]
     Route: 042
     Dates: start: 20080213, end: 20080213
  24. PROTONIX [Concomitant]
     Indication: PRODUCT USED FOR UNKNOWN INDICATION
     Route: 048
  25. LASIX [Concomitant]
     Indication: PRODUCT USED FOR UNKNOWN INDICATION
     Route: 048

REACTIONS (18)
  - CEREBRAL INFARCTION [None]
  - HYPOTENSION [None]
  - DEHYDRATION [None]
  - INTERNATIONAL NORMALISED RATIO INCREASED [None]
  - ACTIVATED PARTIAL THROMBOPLASTIN TIME PROLONGED [None]
  - UNRESPONSIVE TO STIMULI [None]
  - PNEUMONIA KLEBSIELLA [None]
  - ACUTE RESPIRATORY FAILURE [None]
  - PNEUMONIA ASPIRATION [None]
  - DECUBITUS ULCER [None]
  - CARDIAC FAILURE CONGESTIVE [None]
  - SEPTIC SHOCK [None]
  - HYPERSENSITIVITY [None]
  - CLOSTRIDIUM DIFFICILE COLITIS [None]
  - PULMONARY OEDEMA [None]
  - OEDEMA [None]
  - STAPHYLOCOCCAL SEPSIS [None]
  - PLEURAL EFFUSION [None]
